FAERS Safety Report 8881797 (Version 7)
Quarter: 2013Q3

REPORT INFORMATION
  Report Type: Spontaneous
  Country: US (occurrence: US)
  Receive Date: 20121102
  Receipt Date: 20130722
  Transmission Date: 20140515
  Serious: Yes (Hospitalization, Other)
  Sender: FDA-Public Use
  Company Number: US-009507513-1210USA010423

PATIENT
  Sex: Female
  Weight: 107.94 kg

DRUGS (17)
  1. FOSAMAX [Suspect]
     Dosage: 70 MG, QW
     Route: 048
     Dates: start: 200406, end: 200807
  2. ALENDRONATE SODIUM [Suspect]
     Indication: OSTEOPOROSIS
     Dosage: 70 MG, UNK
     Route: 048
     Dates: start: 2008, end: 2008
  3. IRON (UNSPECIFIED) [Concomitant]
     Dosage: UNK, QD
     Dates: start: 2000
  4. VITAMIN E [Concomitant]
     Dosage: UNK, QD
     Dates: start: 2000
  5. XANAX [Concomitant]
     Indication: ANXIETY
     Dosage: UNK
     Dates: start: 2000
  6. ELAVIL (MADE BY MERCK, MARKETED BY ZENECA) [Concomitant]
     Indication: SLEEP DISORDER
     Dosage: UNK
     Route: 048
     Dates: start: 2000
  7. SPIRONOLACTONE [Concomitant]
     Dosage: UNK
     Dates: start: 2003
  8. ACCOLATE [Concomitant]
     Indication: SEASONAL ALLERGY
     Dosage: UNK
     Dates: start: 200505, end: 200506
  9. PREMPRO [Concomitant]
     Indication: MENOPAUSE
     Dosage: UNK
     Dates: start: 200508, end: 200803
  10. LORTAB [Concomitant]
     Indication: PAIN
     Dosage: UNK
     Dates: start: 2000, end: 2006
  11. HYDROCODONE [Concomitant]
     Indication: PAIN
     Dosage: UNK
  12. DURAGESIC [Concomitant]
     Indication: PAIN
     Dosage: UNK
     Route: 062
     Dates: start: 200502, end: 200612
  13. TOPAMAX [Concomitant]
     Indication: PAIN
     Dosage: UNK
     Dates: start: 200507, end: 200704
  14. MORPHINE SULFATE [Concomitant]
     Indication: PAIN
     Dosage: UNK
     Dates: start: 200610, end: 200611
  15. LIDODERM [Concomitant]
     Indication: PAIN
     Dosage: UNK
     Dates: start: 200611, end: 200809
  16. OXYCODONE [Concomitant]
     Indication: PAIN
     Dosage: UNK
     Dates: start: 200801, end: 200802
  17. ASPIRIN [Concomitant]
     Indication: PAIN
     Dosage: UNK
     Dates: start: 200801, end: 200803

REACTIONS (49)
  - Femur fracture [Unknown]
  - Open reduction of fracture [Unknown]
  - Cellulitis [Unknown]
  - Fall [Unknown]
  - Adverse event [Unknown]
  - Knee arthroplasty [Unknown]
  - Knee arthroplasty [Unknown]
  - Knee arthroplasty [Unknown]
  - Osteoarthritis [Unknown]
  - Low turnover osteopathy [Unknown]
  - Clavicle fracture [Unknown]
  - Wrist fracture [Unknown]
  - Vitamin D deficiency [Unknown]
  - Impaired healing [Unknown]
  - Osteoarthritis [Unknown]
  - Depression [Unknown]
  - Inflammation [Unknown]
  - Swelling [Unknown]
  - Skin infection [Unknown]
  - Migraine [Unknown]
  - Nasopharyngitis [Unknown]
  - Bacterial infection [Unknown]
  - Fibromyalgia [Unknown]
  - Hyperchlorhydria [Unknown]
  - Bone disorder [Unknown]
  - Nasopharyngitis [Unknown]
  - Hypertonic bladder [Unknown]
  - Gout [Unknown]
  - Nasopharyngitis [Unknown]
  - Nasopharyngitis [Unknown]
  - Bacterial infection [Unknown]
  - Bacterial infection [Unknown]
  - Skin disorder [Unknown]
  - Bacterial infection [Unknown]
  - Osteomyelitis [Unknown]
  - Myositis [Unknown]
  - Intervertebral disc degeneration [Unknown]
  - Abdominal hernia [Unknown]
  - Bladder dilatation [Unknown]
  - Coronary artery disease [Unknown]
  - Cardiomyopathy [Unknown]
  - Fibromyalgia [Unknown]
  - Fibromyalgia [Unknown]
  - Spinal column stenosis [Unknown]
  - Packed red blood cell transfusion [Unknown]
  - Cardiomegaly [Unknown]
  - Rib fracture [Unknown]
  - Arthralgia [Not Recovered/Not Resolved]
  - Oedema peripheral [Unknown]
